FAERS Safety Report 9226226 (Version 1)
Quarter: 2013Q2

REPORT INFORMATION
  Report Type: Spontaneous
  Country: GB (occurrence: GB)
  Receive Date: 20130411
  Receipt Date: 20130411
  Transmission Date: 20140414
  Serious: Yes (Disabling)
  Sender: FDA-Public Use
  Company Number: GB-PFIZER INC-2013112599

PATIENT
  Age: 41 Year
  Sex: Female
  Weight: 60 kg

DRUGS (1)
  1. CHAMPIX [Suspect]
     Indication: SMOKING CESSATION THERAPY
     Route: 048
     Dates: start: 20130110, end: 20130203

REACTIONS (4)
  - Blood follicle stimulating hormone increased [Unknown]
  - Metrorrhagia [Unknown]
  - Premature menopause [Not Recovered/Not Resolved]
  - Amenorrhoea [Not Recovered/Not Resolved]
